FAERS Safety Report 8371294-5 (Version None)
Quarter: 2012Q1

REPORT INFORMATION
  Report Type: 
  Country: None (occurrence: None)
  Receive Date: 20120323
  Receipt Date: 20110131
  Transmission Date: 20120608
  Serious: Yes (Other)
  Sender: FDA-Public Use
  Company Number: 163-21880-10111939

PATIENT
  Age: 73 Year
  Sex: Male

DRUGS (11)
  1. REVLIMID [Suspect]
     Indication: MULTIPLE MYELOMA
     Dosage: 25 MG, 1 IN 1 D, PO
     Route: 048
     Dates: start: 20070501
  2. PROCRIT [Concomitant]
  3. DEXAMETHASONE [Concomitant]
  4. IBUPROFEN [Concomitant]
  5. METOPROLOL TARTRATE [Concomitant]
  6. COUMADIN [Concomitant]
  7. ASPIRIN [Concomitant]
  8. LISINOPRIL [Concomitant]
  9. ZOMETA [Concomitant]
  10. LEVOTHYROXINE SODIUM [Concomitant]
  11. SIMVASTATIN [Concomitant]

REACTIONS (3)
  - STREPTOCOCCAL INFECTION [None]
  - NEUTROPENIA [None]
  - THROMBOCYTOPENIA [None]
